FAERS Safety Report 25903551 (Version 1)
Quarter: 2025Q4

REPORT INFORMATION
  Report Type: Spontaneous
  Country: CH (occurrence: CH)
  Receive Date: 20251010
  Receipt Date: 20251010
  Transmission Date: 20260118
  Serious: Yes (Hospitalization, Other)
  Sender: GLAXOSMITHKLINE
  Company Number: CH-GSK-CH2025EME126093

PATIENT
  Age: 82 Year
  Sex: Female

DRUGS (2)
  1. MOMELOTINIB DIHYDROCHLORIDE [Suspect]
     Active Substance: MOMELOTINIB DIHYDROCHLORIDE
     Indication: Primary myelofibrosis
     Dosage: 200 MG, QD
  2. MOMELOTINIB DIHYDROCHLORIDE [Suspect]
     Active Substance: MOMELOTINIB DIHYDROCHLORIDE
     Dosage: 150 MG, QD

REACTIONS (2)
  - Pneumonia [Unknown]
  - Anaemia [Unknown]
